FAERS Safety Report 23232877 (Version 1)
Quarter: 2023Q4

REPORT INFORMATION
  Report Type: Spontaneous
  Country: AU (occurrence: None)
  Receive Date: 20231128
  Receipt Date: 20231128
  Transmission Date: 20240110
  Serious: Yes (Other)
  Sender: FDA-Public Use
  Company Number: AU-ROCHE-3462785

PATIENT
  Age: 61 Year
  Sex: Male

DRUGS (52)
  1. MABTHERA [Suspect]
     Active Substance: RITUXIMAB
     Indication: B-cell lymphoma refractory
     Route: 041
     Dates: start: 20201001
  2. MABTHERA [Suspect]
     Active Substance: RITUXIMAB
     Indication: B-cell lymphoma recurrent
  3. ACTEMRA [Suspect]
     Active Substance: TOCILIZUMAB
     Indication: B-cell lymphoma refractory
     Route: 042
     Dates: start: 20201204
  4. ACTEMRA [Suspect]
     Active Substance: TOCILIZUMAB
     Indication: B-cell lymphoma recurrent
  5. CARBOPLATIN [Suspect]
     Active Substance: CARBOPLATIN
     Indication: B-cell lymphoma refractory
     Route: 042
     Dates: start: 20201028
  6. CARBOPLATIN [Suspect]
     Active Substance: CARBOPLATIN
     Indication: B-cell lymphoma recurrent
  7. CISPLATIN [Suspect]
     Active Substance: CISPLATIN
     Indication: B-cell lymphoma refractory
     Route: 042
     Dates: start: 20201002
  8. CISPLATIN [Suspect]
     Active Substance: CISPLATIN
     Indication: B-cell lymphoma recurrent
  9. CYCLOPHOSPHAMIDE [Suspect]
     Active Substance: CYCLOPHOSPHAMIDE
     Indication: B-cell lymphoma refractory
     Route: 065
     Dates: start: 20201125, end: 20201127
  10. CYCLOPHOSPHAMIDE [Suspect]
     Active Substance: CYCLOPHOSPHAMIDE
     Indication: B-cell lymphoma recurrent
  11. DEXAMETHASONE [Suspect]
     Active Substance: DEXAMETHASONE
     Indication: B-cell lymphoma refractory
     Route: 048
     Dates: start: 20201001
  12. DEXAMETHASONE [Suspect]
     Active Substance: DEXAMETHASONE
     Indication: B-cell lymphoma recurrent
  13. ETOPOSIDE [Suspect]
     Active Substance: ETOPOSIDE
     Indication: B-cell lymphoma recurrent
     Route: 042
     Dates: start: 20201027
  14. GEMCITABINE HYDROCHLORIDE [Suspect]
     Active Substance: GEMCITABINE HYDROCHLORIDE
     Indication: B-cell lymphoma recurrent
     Route: 042
     Dates: start: 20201002
  15. GEMCITABINE HYDROCHLORIDE [Suspect]
     Active Substance: GEMCITABINE HYDROCHLORIDE
     Indication: B-cell lymphoma refractory
  16. IFOSFAMIDE [Suspect]
     Active Substance: IFOSFAMIDE
     Indication: B-cell lymphoma refractory
     Route: 042
     Dates: start: 20201028
  17. IFOSFAMIDE [Suspect]
     Active Substance: IFOSFAMIDE
     Indication: B-cell lymphoma recurrent
  18. TISAGENLECLEUCEL [Suspect]
     Active Substance: TISAGENLECLEUCEL
     Indication: B-cell lymphoma refractory
     Route: 042
     Dates: start: 20201201
  19. TISAGENLECLEUCEL [Suspect]
     Active Substance: TISAGENLECLEUCEL
     Indication: B-cell lymphoma recurrent
  20. MESNA [Suspect]
     Active Substance: MESNA
     Indication: B-cell lymphoma refractory
     Route: 065
     Dates: start: 20201028
  21. MESNA [Suspect]
     Active Substance: MESNA
     Indication: B-cell lymphoma recurrent
  22. FLUDARABINE [Concomitant]
     Active Substance: FLUDARABINE PHOSPHATE
     Dates: start: 20201125, end: 20201127
  23. OXYCODONE [Concomitant]
     Active Substance: OXYCODONE
  24. VALACYCLOVIR HYDROCHLORIDE [Concomitant]
     Active Substance: VALACYCLOVIR HYDROCHLORIDE
  25. PANTOPRAZOLE [Concomitant]
     Active Substance: PANTOPRAZOLE
  26. ONDANSETRON [Concomitant]
     Active Substance: ONDANSETRON
  27. LORATADINE [Concomitant]
     Active Substance: LORATADINE
  28. DOCUSATE [Concomitant]
     Active Substance: DOCUSATE
  29. POLYETHYLENE GLYCOL 3350 [Concomitant]
     Active Substance: POLYETHYLENE GLYCOL 3350
  30. POTASSIUM CHLORIDE [Concomitant]
     Active Substance: POTASSIUM CHLORIDE
  31. SODIUM BICARBONATE [Concomitant]
     Active Substance: SODIUM BICARBONATE
  32. MOVICOL [Concomitant]
     Active Substance: POLYETHYLENE GLYCOL 3350\POTASSIUM CHLORIDE\SODIUM BICARBONATE\SODIUM CHLORIDE
  33. ACETAMINOPHEN [Concomitant]
     Active Substance: ACETAMINOPHEN
  34. ATOVAQUONE [Concomitant]
     Active Substance: ATOVAQUONE
  35. POSACONAZOLE [Concomitant]
     Active Substance: POSACONAZOLE
  36. COCAINE [Concomitant]
     Active Substance: COCAINE
  37. CALCIUM CHLORIDE [Concomitant]
     Active Substance: CALCIUM CHLORIDE
  38. SODIUM LACTATE [Concomitant]
     Active Substance: SODIUM LACTATE
  39. FENTANYL [Concomitant]
     Active Substance: FENTANYL\FENTANYL CITRATE
  40. LIDOCAINE HYDROCHLORIDE [Concomitant]
     Active Substance: DEXTROSE MONOHYDRATE\EPINEPHRINE\EPINEPHRINE BITARTRATE\LIDOCAINE\LIDOCAINE HYDROCHLORIDE\LIDOCAINE
  41. MORPHINE [Concomitant]
     Active Substance: MORPHINE
  42. PEPPERMINT OIL [Concomitant]
     Active Substance: PEPPERMINT OIL
  43. METHYL SALICYLATE [Concomitant]
     Active Substance: METHYL SALICYLATE
  44. NALOXONE HYDROCHLORIDE [Concomitant]
     Active Substance: NALOXONE HYDROCHLORIDE
  45. FILGRASTIM [Concomitant]
     Active Substance: FILGRASTIM
  46. METOCLOPRAMIDE [Concomitant]
     Active Substance: METOCLOPRAMIDE
  47. TEMAZEPAM [Concomitant]
     Active Substance: TEMAZEPAM
  48. PIPERACILLIN SODIUM [Concomitant]
     Active Substance: PIPERACILLIN SODIUM
  49. TAZOBACTAM SODIUM [Concomitant]
     Active Substance: TAZOBACTAM SODIUM
  50. POTASSIUM [Concomitant]
     Active Substance: POTASSIUM
  51. THIAMINE [Concomitant]
     Active Substance: THIAMINE
  52. METHOXYFLURANE [Concomitant]
     Active Substance: METHOXYFLURANE

REACTIONS (5)
  - Bone marrow failure [Recovered/Resolved]
  - Cytopenia [Recovered/Resolved]
  - Thrombocytopenia [Recovered/Resolved]
  - Mouth ulceration [Unknown]
  - Off label use [Unknown]

NARRATIVE: CASE EVENT DATE: 20210209
